FAERS Safety Report 6894842-0 (Version None)
Quarter: 2010Q3

REPORT INFORMATION
  Report Type: 
  Country: None (occurrence: None)
  Receive Date: 20100802
  Receipt Date: 20100728
  Transmission Date: 20110219
  Serious: Yes (Other)
  Sender: FDA-Public Use
  Company Number: DE-SANOFI-AVENTIS-200912363DE

PATIENT
  Age: 33 Year
  Sex: Female
  Weight: 74 kg

DRUGS (3)
  1. LANTUS [Suspect]
     Route: 058
     Dates: start: 20090801, end: 20091013
  2. APIDRA [Suspect]
     Route: 058
     Dates: start: 20090801, end: 20091013
  3. FEMIBION [Suspect]
     Indication: SUPPLEMENTATION THERAPY
     Route: 048
     Dates: start: 20090801

REACTIONS (3)
  - DRUG EXPOSURE DURING PREGNANCY [None]
  - DYSPNOEA [None]
  - LUNG INFILTRATION [None]
